FAERS Safety Report 21376092 (Version 1)
Quarter: 2022Q3

REPORT INFORMATION
  Report Type: Spontaneous
  Country: FI (occurrence: FI)
  Receive Date: 20220926
  Receipt Date: 20220926
  Transmission Date: 20221027
  Serious: Yes (Other)
  Sender: FDA-Public Use
  Company Number: FI-TEVA-2022-FI-2075181

PATIENT
  Age: 68 Year
  Sex: Male

DRUGS (2)
  1. ROSUVASTATIN [Suspect]
     Active Substance: ROSUVASTATIN
     Indication: Blood cholesterol abnormal
     Dosage: 20 MILLIGRAM DAILY; FEW YEARS, MORNING
     Route: 048
     Dates: start: 2019
  2. ASPIRIN [Concomitant]
     Active Substance: ASPIRIN
     Indication: Product used for unknown indication

REACTIONS (9)
  - Malignant melanoma [Unknown]
  - Post procedural haemorrhage [Unknown]
  - Contusion [Not Recovered/Not Resolved]
  - Platelet count decreased [Unknown]
  - Arthralgia [Not Recovered/Not Resolved]
  - Pain [Not Recovered/Not Resolved]
  - Gait disturbance [Not Recovered/Not Resolved]
  - Movement disorder [Not Recovered/Not Resolved]
  - Coagulation factor decreased [Not Recovered/Not Resolved]

NARRATIVE: CASE EVENT DATE: 20190101
